FAERS Safety Report 4896709-6 (Version None)
Quarter: 2006Q1

REPORT INFORMATION
  Report Type: 
  Country: None (occurrence: None)
  Receive Date: 20060131
  Receipt Date: 20060119
  Transmission Date: 20060701
  Serious: Yes (Disabling, Other)
  Sender: FDA-Public Use
  Company Number: US-JNJFOC-20040404350

PATIENT
  Sex: Male
  Weight: 49.9 kg

DRUGS (8)
  1. DURAGESIC-100 [Suspect]
     Route: 062
  2. DURAGESIC-100 [Suspect]
     Route: 062
  3. DURAGESIC-100 [Suspect]
     Route: 062
  4. COUMADIN [Concomitant]
     Indication: ANTICOAGULANT THERAPY
  5. AMIODARONE HCL [Concomitant]
     Indication: TACHYCARDIA
  6. DIGOXIN [Concomitant]
  7. TOPROL [Concomitant]
  8. ACTONEL [Concomitant]
     Indication: OSTEOPOROSIS

REACTIONS (25)
  - ANXIETY [None]
  - APPLICATION SITE REACTION [None]
  - ARTHRALGIA [None]
  - COLD SWEAT [None]
  - CONSTIPATION [None]
  - DEVICE FAILURE [None]
  - DYSSTASIA [None]
  - DYSURIA [None]
  - FALL [None]
  - HEART RATE INCREASED [None]
  - HYPERHIDROSIS [None]
  - HYPERTHYROIDISM [None]
  - HYPOAESTHESIA [None]
  - INCONTINENCE [None]
  - INTESTINAL OBSTRUCTION [None]
  - LOSS OF CONSCIOUSNESS [None]
  - MUSCLE TWITCHING [None]
  - NERVE INJURY [None]
  - PAIN IN EXTREMITY [None]
  - PHARMACEUTICAL PRODUCT COMPLAINT [None]
  - POOR QUALITY DRUG ADMINISTERED [None]
  - TACHYCARDIA [None]
  - THERAPEUTIC RESPONSE DECREASED [None]
  - TREMOR [None]
  - WEIGHT DECREASED [None]
